FAERS Safety Report 22363873 (Version 1)
Quarter: 2023Q2

REPORT INFORMATION
  Report Type: Other
  Country: CA (occurrence: CA)
  Receive Date: 20230525
  Receipt Date: 20230525
  Transmission Date: 20230721
  Serious: Yes (Hospitalization, Other)
  Sender: FDA-Public Use
  Company Number: CA-CELLTRION INC.-2023CA010444

PATIENT

DRUGS (5)
  1. RITUXIMAB [Suspect]
     Active Substance: RITUXIMAB
     Indication: Follicular lymphoma
     Route: 065
  2. BAMLANIVIMAB [Concomitant]
     Active Substance: BAMLANIVIMAB
     Dosage: 700.0 MILLIGRAM
     Route: 065
  3. BENDAMUSTINE HYDROCHLORIDE [Concomitant]
     Active Substance: BENDAMUSTINE HYDROCHLORIDE
  4. IMMUNE GLOBULIN NOS [Concomitant]
     Active Substance: IMMUNE GLOBULIN NOS
     Dosage: 75.0 MILLIGRAM
     Route: 065
  5. ELASOMERAN [Concomitant]
     Active Substance: ELASOMERAN
     Route: 065

REACTIONS (4)
  - Hypogammaglobulinaemia [Unknown]
  - Respiratory failure [Unknown]
  - COVID-19 pneumonia [Unknown]
  - COVID-19 [Unknown]
